FAERS Safety Report 7625706-2 (Version None)
Quarter: 2011Q3

REPORT INFORMATION
  Report Type: 
  Country: None (occurrence: None)
  Receive Date: 20110713
  Receipt Date: 20110628
  Transmission Date: 20111222
  Serious: Yes (Other)
  Sender: FDA-Public Use
  Company Number: E2B_00000075

PATIENT
  Sex: Female
  Weight: 64 kg

DRUGS (2)
  1. LAMOTRIGINE [Suspect]
     Indication: EPILEPSY
     Dosage: 100 MG/D, (100 MG, PER DAY), ORAL
     Route: 048
  2. FOLIC ACID CENTRUM MATERNA) [Concomitant]

REACTIONS (2)
  - MATERNAL EXPOSURE DURING PREGNANCY [None]
  - ABORTION SPONTANEOUS [None]
